FAERS Safety Report 4313160-8 (Version None)
Quarter: 2004Q1

REPORT INFORMATION
  Report Type: 
  Country: None (occurrence: None)
  Receive Date: 20040304
  Receipt Date: 20040219
  Transmission Date: 20041129
  Serious: Yes (Death, Hospitalization)
  Sender: FDA-Public Use
  Company Number: EWC040238054

PATIENT
  Age: 45 Year
  Sex: Male
  Weight: 67 kg

DRUGS (7)
  1. GEMCITABINE HYDROCHLORIDE-IV (GEMCITABINE) [Suspect]
     Indication: NON-SMALL CELL LUNG CANCER
     Dosage: 1250 MG/M2/2 OTHER
     Route: 050
     Dates: start: 20031015
  2. CISPLATIN [Concomitant]
  3. DEXAMETHASONE [Concomitant]
  4. MANNITOL [Concomitant]
  5. FURANTHRIL (FUROSEMIDE) [Concomitant]
  6. ROCEPHIN [Concomitant]
  7. TRAMADOL HCL [Concomitant]

REACTIONS (10)
  - CARDIAC FAILURE [None]
  - CONDITION AGGRAVATED [None]
  - CYANOSIS [None]
  - HYPOTONIA [None]
  - MALIGNANT NEOPLASM PROGRESSION [None]
  - METASTASES TO PLEURA [None]
  - NON-SMALL CELL LUNG CANCER [None]
  - PLEURISY [None]
  - PULMONARY EMBOLISM [None]
  - RESPIRATORY FAILURE [None]
